FAERS Safety Report 6709562-2 (Version None)
Quarter: 2010Q2

REPORT INFORMATION
  Report Type: 
  Country: None (occurrence: None)
  Receive Date: 20100503
  Receipt Date: 20100503
  Transmission Date: 20101027
  Serious: No
  Sender: FDA-Public Use
  Company Number: None

PATIENT
  Sex: Male
  Weight: 58.9676 kg

DRUGS (1)
  1. MARINOL [Suspect]
     Indication: HIV WASTING SYNDROME
     Dosage: 5MG BID PO
     Route: 048
     Dates: start: 20050101, end: 20100429

REACTIONS (3)
  - CAPSULE ISSUE [None]
  - FOREIGN BODY [None]
  - PRODUCT SHAPE ISSUE [None]
